FAERS Safety Report 6326406-1 (Version None)
Quarter: 2009Q3

REPORT INFORMATION
  Report Type: 
  Country: None (occurrence: None)
  Receive Date: 20090825
  Receipt Date: 20070530
  Transmission Date: 20100115
  Serious: Yes (Other)
  Sender: FDA-Public Use
  Company Number: US-ASTRAZENECA-2006UW11889

PATIENT
  Age: 788 Month
  Sex: Male
  Weight: 86.6 kg

DRUGS (12)
  1. SEROQUEL [Suspect]
     Indication: MENTAL DISORDER
     Dosage: 100-200 MG
     Route: 048
     Dates: start: 20031107
  2. ZYPREXA [Suspect]
  3. GEODON [Concomitant]
     Dates: start: 20060101
  4. RISPERDAL [Concomitant]
     Dates: start: 20050101
  5. GLYBURIDE [Concomitant]
     Dosage: 1.25-2.5 MG
     Dates: start: 20060227
  6. LOVASTATIN [Concomitant]
     Dates: start: 20060117
  7. MECLIZINE [Concomitant]
     Indication: DIZZINESS
     Dates: start: 20060117
  8. ETODOLAC [Concomitant]
     Dates: start: 20040216
  9. LORAZEPAM [Concomitant]
     Indication: SLEEP DISORDER
     Dates: start: 19980703
  10. AMBIEN [Concomitant]
     Indication: INSOMNIA
     Dates: start: 20031118
  11. AMBIEN [Concomitant]
     Indication: SLEEP DISORDER
     Dates: start: 20031118
  12. DIOVAN [Concomitant]
     Dates: start: 20060227

REACTIONS (5)
  - DIABETES MELLITUS [None]
  - DIABETES MELLITUS INADEQUATE CONTROL [None]
  - HYPERGLYCAEMIA [None]
  - POLYNEUROPATHY IDIOPATHIC PROGRESSIVE [None]
  - TYPE 2 DIABETES MELLITUS [None]
